FAERS Safety Report 14472611 (Version 19)
Quarter: 2024Q4

REPORT INFORMATION
  Report Type: Spontaneous
  Country: CA (occurrence: CA)
  Receive Date: 20180201
  Receipt Date: 20241031
  Transmission Date: 20250115
  Serious: Yes (Hospitalization, Other)
  Sender: MERCK
  Company Number: CA-009507513-1801CAN014527

PATIENT
  Age: 48 Year
  Sex: Female
  Weight: 106.9 kg

DRUGS (148)
  1. EMEND [Suspect]
     Active Substance: APREPITANT
     Indication: Supportive care
     Dosage: 80.0 MILLIGRAM; 1 EVERY 1 DAY(S) (QD)/ 80MG, 1X/DAY
     Route: 048
     Dates: start: 20170331, end: 20170401
  2. EMEND [Suspect]
     Active Substance: APREPITANT
     Indication: Product used for unknown indication
     Dosage: 125.0 MILLIGRAM; 1 EVERY 1 DAY(S) (QD)
     Route: 048
  3. EMEND [Suspect]
     Active Substance: APREPITANT
     Dosage: UNK, EVERY DAY
     Route: 048
  4. EMEND [Suspect]
     Active Substance: APREPITANT
     Dosage: UNK, EVERY DAY
     Route: 048
  5. EMEND [Suspect]
     Active Substance: APREPITANT
     Dosage: UNK, EVERY DAY
     Route: 048
  6. EMEND [Suspect]
     Active Substance: APREPITANT
     Dosage: UNK, EVERY DAY
     Route: 048
  7. EMEND [Suspect]
     Active Substance: APREPITANT
     Dosage: 125.0 MILLIGRAM; 1 EVERY 1 DAY(S) (QD)
     Route: 048
  8. EMEND [Suspect]
     Active Substance: APREPITANT
     Dosage: 125.0 MILLIGRAM; 1 EVERY 1 DAY(S) (QD)
     Route: 048
  9. EMEND [Suspect]
     Active Substance: APREPITANT
     Dosage: 125.0 MILLIGRAM; 1 EVERY 1 DAY(S) (QD)
     Route: 048
  10. EMEND [Suspect]
     Active Substance: APREPITANT
     Dosage: 125.0 MILLIGRAM; 1 EVERY 1 DAY(S) (QD)
     Route: 048
  11. EMEND [Suspect]
     Active Substance: APREPITANT
     Dosage: 125.0 MILLIGRAM; 1 EVERY 1 DAY(S) (QD)
     Route: 048
  12. EMEND [Suspect]
     Active Substance: APREPITANT
     Dosage: 80.0 MILLIGRAM; 1 EVERY 1 DAY(S) (QD)/ 80MG, UNK
     Route: 048
  13. EMEND [Suspect]
     Active Substance: APREPITANT
     Dosage: 80.0 MILLIGRAM; 1 EVERY 1 DAY(S) (QD)/ 80MG, UNK
     Route: 048
  14. EMEND [Suspect]
     Active Substance: APREPITANT
     Dosage: 80.0 MILLIGRAM; 1 EVERY 1 DAY(S) (QD)/ 80MG, UNK
     Route: 048
  15. EMEND [Suspect]
     Active Substance: APREPITANT
     Dosage: 80.0 MILLIGRAM; 1 EVERY 1 DAY(S) (QD)/ 80MG, UNK
     Route: 048
  16. EMEND [Suspect]
     Active Substance: APREPITANT
     Dosage: 80.0 MILLIGRAM; 1 EVERY 1 DAY(S) (QD)/ 80MG, UNK
     Route: 048
  17. EMEND [Suspect]
     Active Substance: APREPITANT
     Dosage: 80.0 MILLIGRAM; 1 EVERY 1 DAY(S) (QD)/ 80MG, UNK
     Route: 048
  18. EMEND [Suspect]
     Active Substance: APREPITANT
     Dosage: 80.0 MILLIGRAM; 1 EVERY 1 DAY(S) (QD)/ 80MG, UNK
     Route: 048
  19. EMEND [Suspect]
     Active Substance: APREPITANT
     Dosage: 80.0 MILLIGRAM; 1 EVERY 1 DAY(S) (QD)/ 80MG, UNK
     Route: 048
  20. EMEND [Suspect]
     Active Substance: APREPITANT
     Dosage: 80.0 MILLIGRAM; 1 EVERY 1 DAY(S) (QD)/ 80MG, UNK
     Route: 048
  21. EMEND [Suspect]
     Active Substance: APREPITANT
     Dosage: 125 UNK
     Route: 048
  22. EMEND [Suspect]
     Active Substance: APREPITANT
     Dosage: 125 UNK
     Route: 048
  23. EMEND [Suspect]
     Active Substance: APREPITANT
     Dosage: UNK, EVERY DAY
     Route: 048
  24. EMEND [Suspect]
     Active Substance: APREPITANT
     Dosage: UNK, EVERY DAY
     Route: 048
  25. EMEND [Suspect]
     Active Substance: APREPITANT
     Dosage: UNK, EVERY DAY
     Route: 048
  26. EMEND [Suspect]
     Active Substance: APREPITANT
     Dosage: UNK, EVERY DAY
     Route: 048
  27. ACETAMINOPHEN\CODEINE PHOSPHATE [Suspect]
     Active Substance: ACETAMINOPHEN\CODEINE PHOSPHATE
     Indication: Tardive dyskinesia
     Dosage: 30 MILLIGRAM, QD; FORM: ELIXIR
     Route: 048
  28. ACETAMINOPHEN\CODEINE PHOSPHATE [Suspect]
     Active Substance: ACETAMINOPHEN\CODEINE PHOSPHATE
     Dosage: UNK; FORM: TABLET
     Route: 048
  29. ACETAMINOPHEN\CODEINE PHOSPHATE [Suspect]
     Active Substance: ACETAMINOPHEN\CODEINE PHOSPHATE
     Dosage: 30 MILLIGRAM, QD; FORM: TABLET
     Route: 048
  30. ACETAMINOPHEN\CODEINE PHOSPHATE [Suspect]
     Active Substance: ACETAMINOPHEN\CODEINE PHOSPHATE
     Dosage: 30 MILLIGRAM, Q4H; FORM: TABLET
     Route: 048
  31. ACETAMINOPHEN\CODEINE PHOSPHATE [Suspect]
     Active Substance: ACETAMINOPHEN\CODEINE PHOSPHATE
     Dosage: 30 MILLIGRAM, Q4H; FORM: TABLET
     Route: 048
  32. ACETAMINOPHEN\CODEINE PHOSPHATE [Suspect]
     Active Substance: ACETAMINOPHEN\CODEINE PHOSPHATE
     Dosage: 30 MILLIGRAM, QD; FORM: TABLET
     Route: 048
  33. ACETAMINOPHEN\CODEINE PHOSPHATE [Suspect]
     Active Substance: ACETAMINOPHEN\CODEINE PHOSPHATE
     Dosage: 30 MILLIGRAM, Q4H; FORM: TABLET
     Route: 048
  34. BETAMETHASONE [Suspect]
     Active Substance: BETAMETHASONE
     Dosage: 2 DOSAGE FORM, QD
     Route: 048
  35. BETAMETHASONE [Suspect]
     Active Substance: BETAMETHASONE
     Dosage: UNK, Q12H
     Route: 048
  36. BETAMETHASONE [Suspect]
     Active Substance: BETAMETHASONE
     Dosage: UNK
     Route: 048
  37. BETAMETHASONE [Suspect]
     Active Substance: BETAMETHASONE
     Dosage: UNK, Q12H
     Route: 048
  38. BETAMETHASONE [Suspect]
     Active Substance: BETAMETHASONE
     Dosage: UNK
     Route: 048
  39. CYCLOPHOSPHAMIDE [Suspect]
     Active Substance: CYCLOPHOSPHAMIDE
     Indication: Tardive dyskinesia
     Route: 042
  40. CYCLOPHOSPHAMIDE [Suspect]
     Active Substance: CYCLOPHOSPHAMIDE
     Indication: Breast cancer female
  41. DEXAMETHASONE [Suspect]
     Active Substance: DEXAMETHASONE
     Indication: Supportive care
     Dosage: 20.0 MILLIGRAM; 1 EVERY 1 DAY(S) (QD) DOSAGE FORM: NOT SPECIFIED/ 20MG 1X/DAY
     Route: 048
     Dates: start: 20170329, end: 20170330
  42. DEXAMETHASONE [Suspect]
     Active Substance: DEXAMETHASONE
     Dosage: 20.0 MILLIGRAM; 1 EVERY 1 DAY(S) (QD)
     Route: 048
  43. DEXAMETHASONE [Suspect]
     Active Substance: DEXAMETHASONE
     Dosage: 20.0 MILLIGRAM; 1 EVERY 1 DAY(S) (QD)
     Route: 048
  44. DEXAMETHASONE [Suspect]
     Active Substance: DEXAMETHASONE
     Dosage: 20.0 MILLIGRAM; 1 EVERY 1 DAY(S) (QD)
     Route: 048
  45. DEXAMETHASONE [Suspect]
     Active Substance: DEXAMETHASONE
     Dosage: 20.0 MILLIGRAM; 1 EVERY 1 DAY(S) (QD)
     Route: 048
  46. DEXAMETHASONE [Suspect]
     Active Substance: DEXAMETHASONE
     Dosage: UNK
     Route: 048
  47. DEXAMETHASONE [Suspect]
     Active Substance: DEXAMETHASONE
     Dosage: 20.0 MILLIGRAM; 1 EVERY 1 DAY(S) (QD)
     Route: 065
  48. DEXAMETHASONE [Suspect]
     Active Substance: DEXAMETHASONE
     Dosage: UNK
     Route: 065
  49. DEXAMETHASONE [Suspect]
     Active Substance: DEXAMETHASONE
     Dosage: UNK
     Route: 048
  50. DEXAMETHASONE SODIUM PHOSPHATE [Suspect]
     Active Substance: DEXAMETHASONE SODIUM PHOSPHATE
     Indication: Supportive care
     Dosage: 20 MILLIGRAM, QD
     Route: 048
  51. DOXORUBICIN [Suspect]
     Active Substance: DOXORUBICIN
     Indication: Breast cancer
     Dosage: UNK; FORM: INJECTION
     Route: 042
  52. DOXORUBICIN [Suspect]
     Active Substance: DOXORUBICIN
     Dosage: 136 MILLIGRAM, 1 EVERY 2 WEEKS; FORM: SOLUTION INTRAVENOUS
     Route: 042
  53. DOXORUBICIN [Suspect]
     Active Substance: DOXORUBICIN
     Dosage: 136 MILLIGRAM; FORM: INJECTION
     Route: 042
  54. DOXORUBICIN [Suspect]
     Active Substance: DOXORUBICIN
     Dosage: 136 MILLIGRAM, 1 EVERY 2 WEEKS; FORM: INJECTION
     Route: 042
  55. DOXORUBICIN [Suspect]
     Active Substance: DOXORUBICIN
     Dosage: 136 MILLIGRAM, 1 EVERY 2 WEEKS; FORM: INJECTION
     Route: 042
  56. DOXORUBICIN [Suspect]
     Active Substance: DOXORUBICIN
     Dosage: UNK; FORM: INJECTION
     Route: 042
  57. DOXORUBICIN HYDROCHLORIDE [Suspect]
     Active Substance: DOXORUBICIN HYDROCHLORIDE
     Indication: Breast cancer female
     Dosage: 136 MILLIGRAM
     Route: 042
  58. ENOXAPARIN [Suspect]
     Active Substance: ENOXAPARIN
     Indication: Tardive dyskinesia
     Dosage: 150.0 MILLIGRAM; 1 EVERY 1 DAY(S) (QD)/ 150MG 1X/DAY
     Route: 058
     Dates: start: 20161222
  59. ENOXAPARIN [Suspect]
     Active Substance: ENOXAPARIN
     Dosage: UNK
     Route: 058
  60. ENOXAPARIN [Suspect]
     Active Substance: ENOXAPARIN
     Dosage: 150.0 MILLIGRAM; 1 EVERY 1 DAY(S) (QD)/ 150MG 1X/DAY
     Route: 058
     Dates: start: 20161222
  61. ENOXAPARIN [Suspect]
     Active Substance: ENOXAPARIN
     Dosage: 150.0 MILLIGRAM; 1 EVERY 1 DAY(S) (QD)/ 150MG 1X/DAY
     Route: 058
     Dates: start: 20161222
  62. ENOXAPARIN [Suspect]
     Active Substance: ENOXAPARIN
     Dosage: UNK
     Route: 058
  63. FILGRASTIM [Suspect]
     Active Substance: FILGRASTIM
     Indication: Supportive care
     Route: 048
  64. FILGRASTIM [Suspect]
     Active Substance: FILGRASTIM
     Dosage: 480 MILLIGRAM, QD
     Route: 065
  65. LEVOFLOXACIN [Suspect]
     Active Substance: LEVOFLOXACIN
     Indication: Tardive dyskinesia
     Dosage: 500.0 MILLIGRAM; 1 EVERY 1 DAY(S) (QD), DOSAGE FORM NOT SPECIFIED
     Route: 048
     Dates: start: 20170209
  66. LEVOFLOXACIN [Suspect]
     Active Substance: LEVOFLOXACIN
     Dosage: 500.0 MG
     Route: 048
  67. LEVOFLOXACIN [Suspect]
     Active Substance: LEVOFLOXACIN
     Dosage: 500.0 MILLIGRAM; 1 EVERY 1 DAY(S) (QD), DOSAGE FORM NOT SPECIFIED
     Route: 048
  68. LEVOFLOXACIN [Suspect]
     Active Substance: LEVOFLOXACIN
     Dosage: 500.0 MILLIGRAM; 1 EVERY 1 DAY(S) (QD), DOSAGE FORM NOT SPECIFIED
     Route: 048
  69. LORAZEPAM [Suspect]
     Active Substance: LORAZEPAM
     Indication: Tardive dyskinesia
     Dosage: 0.5 MILLIGRAM , 2 EVERY 1 DAYS / 0.5 MG 2X/DAY
     Route: 048
     Dates: start: 20170123
  70. LORAZEPAM [Suspect]
     Active Substance: LORAZEPAM
     Dosage: 0.5 MILLIGRAM , EVERY 12 HOURS (Q12H)
     Route: 048
     Dates: start: 20170123
  71. LORAZEPAM [Suspect]
     Active Substance: LORAZEPAM
     Dosage: 0.5 MILLIGRAM , 2 EVERY 1 DAYS / 0.5 MG 2X/DAY
     Route: 048
     Dates: start: 20170123
  72. LORAZEPAM [Suspect]
     Active Substance: LORAZEPAM
     Dosage: 0.5 MILLIGRAM , 1 EVERY 1 DAYS(QD)
     Route: 048
     Dates: start: 20170123
  73. METOCLOPRAMIDE [Suspect]
     Active Substance: METOCLOPRAMIDE
     Indication: Tardive dyskinesia
     Dosage: 10 MILLIGRAM, 4 EVERY 1 DAY (QID)
     Route: 048
  74. METOCLOPRAMIDE [Suspect]
     Active Substance: METOCLOPRAMIDE
     Dosage: 10 MILLIGRAM, 4 EVERY 1 DAY (QID)
     Route: 048
  75. METOCLOPRAMIDE [Suspect]
     Active Substance: METOCLOPRAMIDE
     Dosage: 10 MILLIGRAM, 4 EVERY 1 DAY (QID)
     Route: 048
  76. METOCLOPRAMIDE [Suspect]
     Active Substance: METOCLOPRAMIDE
     Dosage: 10 MILLIGRAM, 1 EVERY 1 DAY (QD)
     Route: 048
  77. METOCLOPRAMIDE [Suspect]
     Active Substance: METOCLOPRAMIDE
     Dosage: 10 MILLIGRAM, 1 EVERY 6 HOURS(Q6H)
     Route: 048
  78. NEULASTA [Suspect]
     Active Substance: PEGFILGRASTIM
     Indication: Supportive care
     Dosage: 6 MILLIGRAM, 1 EVERY DAY (QD); FORM: SOLUTION SUBCUTANEOUS
     Route: 058
  79. NEULASTA [Suspect]
     Active Substance: PEGFILGRASTIM
     Dosage: 6 MILLIGRAM, 1 EVERY DAY (QD); FORM: SOLUTION FOR INFUSION
     Route: 058
  80. NEULASTA [Suspect]
     Active Substance: PEGFILGRASTIM
     Dosage: 6 MILLIGRAM, 1 EVERY DAY (QD); FORM: SOLUTION FOR INFUSION
     Route: 058
  81. NEULASTA [Suspect]
     Active Substance: PEGFILGRASTIM
     Dosage: 6 MILLIGRAM, 1 EVERY DAY (QD); FORM: SOLUTION FOR INFUSION
     Route: 058
  82. NEULASTA [Suspect]
     Active Substance: PEGFILGRASTIM
     Dosage: 6 MILLIGRAM, 1 EVERY DAY (QD); FORM: SOLUTION FOR INFUSION
     Route: 058
  83. NEULASTA [Suspect]
     Active Substance: PEGFILGRASTIM
     Dosage: 6 MILLIGRAM, 1 EVERY DAY (QD); FORM: SOLUTION FOR INFUSION
     Route: 058
  84. NEULASTA [Suspect]
     Active Substance: PEGFILGRASTIM
     Dosage: 6 MILLIGRAM, 1 EVERY DAY (QD); FORM: SOLUTION FOR INFUSION
     Route: 058
  85. NEUPOGEN [Suspect]
     Active Substance: FILGRASTIM
     Indication: Supportive care
     Dosage: 480 MILLIGRAM, QD
     Route: 048
  86. NEUPOGEN [Suspect]
     Active Substance: FILGRASTIM
     Dosage: 480 MILLIGRAM, QD
     Route: 048
  87. NEUPOGEN [Suspect]
     Active Substance: FILGRASTIM
     Dosage: 480 MILLIGRAM, QD
     Route: 048
  88. NEUPOGEN [Suspect]
     Active Substance: FILGRASTIM
     Dosage: 480 MILLIGRAM, QD
     Route: 048
  89. NEUPOGEN [Suspect]
     Active Substance: FILGRASTIM
     Dosage: 125 MILLIGRAM, QD
     Route: 048
  90. NEUPOGEN [Suspect]
     Active Substance: FILGRASTIM
     Dosage: 480 MILLIGRAM, QD
     Route: 048
  91. ONDANSETRON HYDROCHLORIDE [Suspect]
     Active Substance: ONDANSETRON HYDROCHLORIDE
     Indication: Supportive care
     Dosage: 8 MILLIGRAM; FORM: NOT SPECIFIED
     Route: 048
  92. ONDANSETRON HYDROCHLORIDE [Suspect]
     Active Substance: ONDANSETRON HYDROCHLORIDE
     Dosage: 8 MILLIGRAM; FORM: ORODISPERSIBLE FILM
     Route: 048
  93. ONDANSETRON HYDROCHLORIDE [Suspect]
     Active Substance: ONDANSETRON HYDROCHLORIDE
     Dosage: 8 MILLIGRAM; FORM: ORODISPERSIBLE FILM
     Route: 048
  94. ONDANSETRON HYDROCHLORIDE [Suspect]
     Active Substance: ONDANSETRON HYDROCHLORIDE
     Dosage: 8 UNK; FORM: ORODISPERSIBLE FILM
     Route: 048
  95. ONDANSETRON HYDROCHLORIDE [Suspect]
     Active Substance: ONDANSETRON HYDROCHLORIDE
     Dosage: UNK ; FORM: ORODISPERSIBLE FILM
     Route: 048
  96. ONDANSETRON HYDROCHLORIDE [Suspect]
     Active Substance: ONDANSETRON HYDROCHLORIDE
     Dosage: 8 MILLIGRAM; FORM: ORODISPERSIBLE FILM
     Route: 048
  97. ONDANSETRON HYDROCHLORIDE [Suspect]
     Active Substance: ONDANSETRON HYDROCHLORIDE
     Dosage: 8 MILLIGRAM; FORM: ORODISPERSIBLE FILM
     Route: 048
  98. ONDANSETRON HYDROCHLORIDE [Suspect]
     Active Substance: ONDANSETRON HYDROCHLORIDE
     Dosage: 8 MILLIGRAM, QD; FORM: ORODISPERSIBLE FILM
     Route: 048
  99. ONDANSETRON HYDROCHLORIDE [Suspect]
     Active Substance: ONDANSETRON HYDROCHLORIDE
     Dosage: 8 MILLIGRAM; FORM: ORODISPERSIBLE FILM
     Route: 048
  100. ONDANSETRON HYDROCHLORIDE [Suspect]
     Active Substance: ONDANSETRON HYDROCHLORIDE
     Dosage: 8 MILLIGRAM; FORM: ORODISPERSIBLE FILM
     Route: 048
  101. ONDANSETRON HYDROCHLORIDE [Suspect]
     Active Substance: ONDANSETRON HYDROCHLORIDE
     Dosage: 8 MILLIGRAM, QD; FORM: ORODISPERSIBLE FILM
     Route: 048
  102. ONDANSETRON HYDROCHLORIDE [Suspect]
     Active Substance: ONDANSETRON HYDROCHLORIDE
     Dosage: 8 MILLIGRAM; FORM: ORODISPERSIBLE FILM
     Route: 048
  103. ONDANSETRON HYDROCHLORIDE [Suspect]
     Active Substance: ONDANSETRON HYDROCHLORIDE
     Dosage: 8 MILLIGRAM; FORM: ORODISPERSIBLE FILM
     Route: 048
  104. ONDANSETRON HYDROCHLORIDE [Suspect]
     Active Substance: ONDANSETRON HYDROCHLORIDE
     Dosage: 8 UNK; FORM: ORODISPERSIBLE FILM
     Route: 048
  105. ONDANSETRON HYDROCHLORIDE [Suspect]
     Active Substance: ONDANSETRON HYDROCHLORIDE
     Dosage: UNK ; FORM: ORODISPERSIBLE FILM
     Route: 048
  106. PACLITAXEL [Suspect]
     Active Substance: PACLITAXEL
     Indication: Breast cancer
     Dosage: 303 MILLIGRAM
     Route: 042
  107. PACLITAXEL [Suspect]
     Active Substance: PACLITAXEL
     Indication: Supportive care
     Dosage: 243MILLIGRAM,QD
     Route: 042
  108. PACLITAXEL [Suspect]
     Active Substance: PACLITAXEL
     Dosage: 393 MILLIGRAM, QD
     Route: 042
  109. PACLITAXEL [Suspect]
     Active Substance: PACLITAXEL
     Dosage: 303 MILLIGRAM,
     Route: 042
  110. PACLITAXEL [Suspect]
     Active Substance: PACLITAXEL
     Dosage: 393 MILLIGRAM, 1 EVERY 1 DAYS (QD)
     Route: 042
  111. PACLITAXEL [Suspect]
     Active Substance: PACLITAXEL
     Dosage: 243 MILLIGRAM
     Route: 042
  112. PACLITAXEL [Suspect]
     Active Substance: PACLITAXEL
     Dosage: 303 MILLIGRAM,
     Route: 042
  113. PACLITAXEL [Suspect]
     Active Substance: PACLITAXEL
     Dosage: 393 MILLIGRAM,
     Route: 042
  114. PEGFILGRASTIM [Suspect]
     Active Substance: PEGFILGRASTIM
     Indication: Supportive care
     Dosage: 6 MILLIGRAM
     Route: 058
  115. CYCLOPHOSPHAMIDE [Suspect]
     Active Substance: CYCLOPHOSPHAMIDE
     Indication: Breast cancer
     Dosage: 1360 MG, 1 EVERY 2 WEEKS
     Route: 042
  116. CYCLOPHOSPHAMIDE [Suspect]
     Active Substance: CYCLOPHOSPHAMIDE
     Indication: Tardive dyskinesia
     Dosage: UNK
     Route: 042
  117. CYCLOPHOSPHAMIDE [Suspect]
     Active Substance: CYCLOPHOSPHAMIDE
     Dosage: 1360 MG, 1 EVERY 2 WEEKS
     Route: 042
  118. CYCLOPHOSPHAMIDE [Suspect]
     Active Substance: CYCLOPHOSPHAMIDE
     Dosage: 1360 MG, 1 EVERY 2 WEEKS
     Route: 042
  119. CYCLOPHOSPHAMIDE [Suspect]
     Active Substance: CYCLOPHOSPHAMIDE
     Dosage: 1360 MG
     Route: 042
  120. CYCLOPHOSPHAMIDE [Suspect]
     Active Substance: CYCLOPHOSPHAMIDE
     Dosage: UNK
     Route: 042
  121. CYCLOPHOSPHAMIDE [Suspect]
     Active Substance: CYCLOPHOSPHAMIDE
     Dosage: UNK
     Route: 042
  122. CYCLOPHOSPHAMIDE [Suspect]
     Active Substance: CYCLOPHOSPHAMIDE
     Dosage: UNK
     Route: 042
  123. RANITIDINE [Suspect]
     Active Substance: RANITIDINE
     Indication: Tardive dyskinesia
     Route: 048
  124. RANITIDINE [Suspect]
     Active Substance: RANITIDINE
     Indication: Product used for unknown indication
  125. RANITIDINE HYDROCHLORIDE [Suspect]
     Active Substance: RANITIDINE HYDROCHLORIDE
     Indication: Tardive dyskinesia
     Dosage: 150 MILLIGRAM, 2 EVERY 1 DAY
     Route: 048
  126. RANITIDINE HYDROCHLORIDE [Suspect]
     Active Substance: RANITIDINE HYDROCHLORIDE
     Dosage: 150 MILLIGRAM, 1 EVERY 2 WEEKS (CYCLICAL)
     Route: 048
     Dates: start: 20170112
  127. RANITIDINE HYDROCHLORIDE [Suspect]
     Active Substance: RANITIDINE HYDROCHLORIDE
     Dosage: 2 EVERY 1 DAY
     Route: 048
  128. RANITIDINE HYDROCHLORIDE [Suspect]
     Active Substance: RANITIDINE HYDROCHLORIDE
     Dosage: 150 MILLIGRAM, 1 EVERY 12 HOURS
     Route: 048
  129. RANITIDINE HYDROCHLORIDE [Suspect]
     Active Substance: RANITIDINE HYDROCHLORIDE
     Dosage: 2 EVERY 1 DAY
     Route: 048
  130. RANITIDINE HYDROCHLORIDE [Suspect]
     Active Substance: RANITIDINE HYDROCHLORIDE
     Dosage: 2 EVERY 1 DAY
     Route: 048
  131. RANITIDINE HYDROCHLORIDE [Suspect]
     Active Substance: RANITIDINE HYDROCHLORIDE
     Dosage: 150 MG 2 EVERY 1 DAY; 150 MG 2X/DAY
     Route: 048
  132. RANITIDINE HYDROCHLORIDE [Suspect]
     Active Substance: RANITIDINE HYDROCHLORIDE
     Dosage: 150 MILLIGRAM, 2 EVERY 1 DAY
     Route: 048
  133. RANITIDINE HYDROCHLORIDE [Suspect]
     Active Substance: RANITIDINE HYDROCHLORIDE
     Dosage: 2 EVERY 1 DAY
     Route: 048
  134. RANITIDINE HYDROCHLORIDE [Suspect]
     Active Substance: RANITIDINE HYDROCHLORIDE
     Dosage: 2 EVERY 1 DAY
     Route: 048
  135. RANITIDINE HYDROCHLORIDE [Suspect]
     Active Substance: RANITIDINE HYDROCHLORIDE
     Dosage: 2 EVERY 1 DAY
     Route: 048
  136. TRASTUZUMAB [Suspect]
     Active Substance: TRASTUZUMAB
     Indication: Tardive dyskinesia
     Dosage: 626.0 MILLIGRAM
     Route: 065
  137. TRASTUZUMAB [Suspect]
     Active Substance: TRASTUZUMAB
     Dosage: 626.0 MILLIGRAM
     Route: 065
  138. TRASTUZUMAB [Suspect]
     Active Substance: TRASTUZUMAB
     Dosage: UNK
     Route: 048
  139. TRASTUZUMAB [Suspect]
     Active Substance: TRASTUZUMAB
     Dosage: 626.0 MILLIGRAM
     Route: 065
  140. TRASTUZUMAB [Suspect]
     Active Substance: TRASTUZUMAB
     Dosage: UNK
     Route: 065
  141. TRASTUZUMAB [Suspect]
     Active Substance: TRASTUZUMAB
     Dosage: 866.0 MILLIGRAM,QD
     Route: 065
     Dates: start: 20170330
  142. TRASTUZUMAB [Suspect]
     Active Substance: TRASTUZUMAB
     Dosage: UNK
     Route: 065
  143. TRASTUZUMAB [Suspect]
     Active Substance: TRASTUZUMAB
     Dosage: 626.0 MILLIGRAM
     Route: 065
  144. TRASTUZUMAB [Suspect]
     Active Substance: TRASTUZUMAB
     Dosage: 866.0 MILLIGRAM,QD
     Route: 065
     Dates: start: 20170330
  145. TRASTUZUMAB [Suspect]
     Active Substance: TRASTUZUMAB
     Dosage: 866.0 MILLIGRAM,QD
     Route: 065
     Dates: start: 20170330
  146. TRASTUZUMAB [Suspect]
     Active Substance: TRASTUZUMAB
     Dosage: 626.0 MILLIGRAM
     Route: 065
  147. TRASTUZUMAB [Suspect]
     Active Substance: TRASTUZUMAB
     Dosage: UNK
     Route: 048
  148. TRASTUZUMAB [Suspect]
     Active Substance: TRASTUZUMAB
     Dosage: UNK
     Route: 065

REACTIONS (12)
  - Atelectasis [Recovered/Resolved]
  - Computerised tomogram thorax [Recovered/Resolved]
  - Computerised tomogram thorax abnormal [Recovered/Resolved]
  - Cough [Recovered/Resolved]
  - Dyspnoea [Recovered/Resolved]
  - Fatigue [Recovered/Resolved]
  - Gastrointestinal disorder [Recovered/Resolved]
  - Hypoxia [Recovered/Resolved]
  - Nausea [Recovered/Resolved]
  - Pyrexia [Recovered/Resolved]
  - Rash [Recovered/Resolved]
  - Off label use [Unknown]

NARRATIVE: CASE EVENT DATE: 20170209
